FAERS Safety Report 5230498-0 (Version None)
Quarter: 2007Q1

REPORT INFORMATION
  Report Type: 
  Country: None (occurrence: None)
  Receive Date: 20070206
  Receipt Date: 20070131
  Transmission Date: 20070707
  Serious: Yes (Other)
  Sender: FDA-Public Use
  Company Number: JP-BRISTOL-MYERS SQUIBB COMPANY-13601240

PATIENT
  Age: 63 Year
  Sex: Male

DRUGS (2)
  1. MITOMYCIN-C BULK POWDER [Suspect]
     Indication: GUM NEOPLASM MALIGNANT STAGE UNSPECIFIED
     Route: 042
     Dates: start: 20001010, end: 20001010
  2. PEPLEO [Concomitant]
     Indication: PREMEDICATION
     Route: 042
     Dates: start: 20000912, end: 20000916

REACTIONS (1)
  - ACUTE MYELOID LEUKAEMIA [None]
